FAERS Safety Report 5586868-4 (Version None)
Quarter: 2008Q1

REPORT INFORMATION
  Report Type: 
  Country: None (occurrence: None)
  Receive Date: 20080108
  Receipt Date: 20080108
  Transmission Date: 20080703
  Serious: No
  Sender: FDA-Public Use
  Company Number: None

PATIENT
  Age: 59 Year
  Sex: Male
  Weight: 99.7913 kg

DRUGS (1)
  1. GABAPENTIN [Suspect]
     Indication: PAIN
     Dosage: 1 CAP 3 TIMES OTHER
     Route: 050
     Dates: start: 20071213, end: 20071216

REACTIONS (2)
  - ERECTILE DYSFUNCTION [None]
  - FRUSTRATION [None]
